FAERS Safety Report 4378794-3 (Version None)
Quarter: 2004Q2

REPORT INFORMATION
  Report Type: 
  Country: None (occurrence: None)
  Receive Date: 20040609
  Receipt Date: 20040527
  Transmission Date: 20050107
  Serious: Yes (Other)
  Sender: FDA-Public Use
  Company Number: 2004019193

PATIENT
  Age: 59 Year
  Sex: Female
  Weight: 63.5036 kg

DRUGS (12)
  1. ZYRTEC-D 12 HOUR [Suspect]
     Indication: NASAL CONGESTION
     Dosage: BID, ORAL
     Route: 048
     Dates: start: 20040307, end: 20040309
  2. ZYRTEC-D 12 HOUR [Suspect]
     Indication: SINUS DISORDER
     Dosage: BID, ORAL
     Route: 048
     Dates: start: 20040307, end: 20040309
  3. ATORVASTATIN (ATORVASTATIN) [Concomitant]
  4. ALL OTHER THERAPEUTIC PRODUCTS (ALL OTHER THERAPEUTIC PRODUCTS) [Concomitant]
  5. CHOLESTEROL- AND TRIGLYCERIDE REDUCERS (CHOLESTEROL- AND TRIGLYCERIDE [Concomitant]
  6. BUPROPION HYDROCHLORIDE [Concomitant]
  7. TOLTERODINE L-TARTRATE (TOLTERODINE L-TARTRATE) [Concomitant]
  8. THYROID TAB [Concomitant]
  9. TRAZODONE HCL [Concomitant]
  10. LIBRAX [Concomitant]
  11. LANSOPRAZOLE [Concomitant]
  12. ALL OTHER THERAPEUTIC PRODUCTS (ALL OTHER THERAPEUTIC PRODUCTS) [Concomitant]

REACTIONS (3)
  - APHASIA [None]
  - DYSPNOEA [None]
  - RESPIRATORY TRACT INFECTION [None]
